FAERS Safety Report 18692892 (Version 1)
Quarter: 2021Q1

REPORT INFORMATION
  Report Type: Spontaneous
  Country: US (occurrence: US)
  Receive Date: 20210104
  Receipt Date: 20210104
  Transmission Date: 20210419
  Serious: Yes (Other)
  Sender: FDA-Public Use
  Company Number: US-SA-2020SA370666

PATIENT

DRUGS (2)
  1. PROLIA [Suspect]
     Active Substance: DENOSUMAB
     Indication: OSTEOPOROSIS POSTMENOPAUSAL
     Dosage: UNK
     Dates: start: 201409
  2. AMBIEN [Suspect]
     Active Substance: ZOLPIDEM TARTRATE
     Indication: PRODUCT USED FOR UNKNOWN INDICATION

REACTIONS (8)
  - Encapsulation reaction [Unknown]
  - Intentional product misuse [Unknown]
  - Humerus fracture [Unknown]
  - Scar [Unknown]
  - Wrist fracture [Unknown]
  - Fall [Unknown]
  - Postoperative adhesion [Unknown]
  - Impaired healing [Unknown]

NARRATIVE: CASE EVENT DATE: 20140930
